FAERS Safety Report 6288633-1 (Version None)
Quarter: 2009Q3

REPORT INFORMATION
  Report Type: 
  Country: None (occurrence: None)
  Receive Date: 20090729
  Receipt Date: 20090728
  Transmission Date: 20100115
  Serious: Yes (Other)
  Sender: FDA-Public Use
  Company Number: US-AMGEN-US357551

PATIENT
  Sex: Male

DRUGS (14)
  1. NPLATE [Suspect]
     Indication: IDIOPATHIC THROMBOCYTOPENIC PURPURA
     Route: 058
     Dates: start: 20090722
  2. CALCIUM [Concomitant]
     Route: 065
  3. CLONIDINE [Concomitant]
     Route: 065
  4. DEXAMETHASONE [Concomitant]
     Route: 065
  5. IRON [Concomitant]
     Route: 065
  6. LISINOPRIL [Concomitant]
     Route: 065
  7. METOPROLOL [Concomitant]
     Route: 065
  8. MINOXIDIL [Concomitant]
     Route: 065
  9. NIFEDIPINE [Concomitant]
     Route: 065
  10. OMEPRAZOLE [Concomitant]
     Route: 065
  11. PENTAMIDINE ISETHIONATE [Concomitant]
     Route: 065
  12. PREDNISONE [Concomitant]
     Route: 065
  13. TADALAFIL [Concomitant]
     Route: 065
  14. TACROLIMUS [Concomitant]
     Route: 065

REACTIONS (2)
  - ATRIAL FIBRILLATION [None]
  - HAEMOGLOBIN DECREASED [None]
